FAERS Safety Report 8984598 (Version 2)
Quarter: 2012Q4

REPORT INFORMATION
  Report Type: 
  Country: IN (occurrence: IN)
  Receive Date: 20121226
  Receipt Date: 20121227
  Transmission Date: 20130627
  Serious: Yes (Other)
  Sender: FDA-Public Use
  Company Number: IN-JNJFOC-20121206714

PATIENT
  Age: 42 Year
  Sex: Male

DRUGS (5)
  1. MEBENDAZOLE [Suspect]
     Indication: DRUG ABUSE
     Dosage: for more than last 12 years
     Route: 065
  2. MEBENDAZOLE [Suspect]
     Indication: DRUG ABUSE
     Dosage: for more than last 12 years
     Route: 065
  3. METRONIDAZOLE [Suspect]
     Indication: DRUG ABUSE
     Dosage: for more than last 12 years
     Route: 065
  4. ALBENDAZOLE [Suspect]
     Indication: DRUG ABUSE
     Dosage: for more than last 12 years
     Route: 065
  5. ORNIDAZOLE [Suspect]
     Indication: DRUG ABUSE
     Dosage: for more than last 12 years
     Route: 065

REACTIONS (2)
  - Drug abuse [Unknown]
  - Generalised anxiety disorder [Unknown]
